FAERS Safety Report 5083642-2 (Version None)
Quarter: 2006Q3

REPORT INFORMATION
  Report Type: 
  Country: None (occurrence: None)
  Receive Date: 20060816
  Receipt Date: 20060621
  Transmission Date: 20061208
  Serious: Yes (Other)
  Sender: FDA-Public Use
  Company Number: A03200604055

PATIENT

DRUGS (4)
  1. ELOXATIN [Suspect]
     Dosage: INTRAVENOUS NOS
     Route: 042
  2. FLUOROURACIL [Suspect]
     Dosage: INTRAVENOUS NOS
     Route: 042
  3. LEUCOVORIN CALCIUM [Suspect]
     Dosage: INTRAVENOUS NOS
     Route: 042
  4. AVASTIN [Suspect]
     Dosage: INTRAVENOUS NOS
     Route: 042

REACTIONS (2)
  - HAEMOLYTIC ANAEMIA [None]
  - INTERSTITIAL LUNG DISEASE [None]
